FAERS Safety Report 8484281-3 (Version None)
Quarter: 2012Q3

REPORT INFORMATION
  Report Type: 
  Country: None (occurrence: None)
  Receive Date: 20120703
  Receipt Date: 20120625
  Transmission Date: 20120928
  Serious: Yes (Hospitalization, Other)
  Sender: FDA-Public Use
  Company Number: US-BAYER-201041619NA

PATIENT
  Age: 43 Year
  Sex: Female
  Weight: 90.703 kg

DRUGS (14)
  1. METHYLPREDNISOLONE [Concomitant]
  2. HYDROCHLOROTHIAZDE TAB [Concomitant]
  3. DICLOFENAC SODIUM [Concomitant]
  4. TRAMADOL HCL [Concomitant]
  5. CYCLOBENZAPRINE [Concomitant]
  6. VICODIN [Concomitant]
     Indication: PAIN
     Dosage: UNK UNK, PRN
  7. MOTRIN [Concomitant]
  8. IBUPROFEN (ADVIL) [Concomitant]
  9. SINGULAIR [Concomitant]
  10. YAZ [Suspect]
     Indication: CONTRACEPTION
     Dosage: UNK
     Dates: start: 20070401, end: 20091201
  11. HYDROCODONE BITARTRATE AND ACETAMINOPHEN [Concomitant]
  12. YAZ [Suspect]
     Indication: PREMENSTRUAL SYNDROME
  13. NAPROXEN (ALEVE) [Concomitant]
  14. POTASSIUM [Concomitant]

REACTIONS (4)
  - DEEP VEIN THROMBOSIS [None]
  - PULMONARY EMBOLISM [None]
  - GALLBLADDER NON-FUNCTIONING [None]
  - DYSPNOEA [None]
